FAERS Safety Report 4890635-4 (Version None)
Quarter: 2006Q1

REPORT INFORMATION
  Report Type: 
  Country: None (occurrence: None)
  Receive Date: 20060125
  Receipt Date: 20041202
  Transmission Date: 20060701
  Serious: No
  Sender: FDA-Public Use
  Company Number: US-BRISTOL-MYERS SQUIBB COMPANY-12783767

PATIENT
  Sex: Female

DRUGS (1)
  1. CARDIOLITE [Suspect]
     Indication: EXERCISE ELECTROCARDIOGRAM
     Dates: start: 20041201, end: 20041201

REACTIONS (4)
  - CHILLS [None]
  - DISORIENTATION [None]
  - DYSGEUSIA [None]
  - NAUSEA [None]
